FAERS Safety Report 15599132 (Version 3)
Quarter: 2018Q4

REPORT INFORMATION
  Report Type: Report from Study
  Country: US (occurrence: US)
  Receive Date: 20181108
  Receipt Date: 20181201
  Transmission Date: 20190205
  Serious: Yes (Death)
  Sender: FDA-Public Use
  Company Number: US-TEVA-2018-US-972711

PATIENT
  Age: 57 Year
  Sex: Male
  Weight: 104 kg

DRUGS (1)
  1. OXYCODONE [Suspect]
     Active Substance: OXYCODONE
     Route: 065

REACTIONS (1)
  - Accidental overdose [Fatal]
